FAERS Safety Report 4347234-2 (Version None)
Quarter: 2004Q2

REPORT INFORMATION
  Report Type: 
  Country: None (occurrence: None)
  Receive Date: 20040426
  Receipt Date: 20040303
  Transmission Date: 20050107
  Serious: Yes (Other)
  Sender: FDA-Public Use
  Company Number: US-MERCK-0403USA00304

PATIENT
  Age: 73 Year
  Sex: Female
  Weight: 91 kg

DRUGS (7)
  1. [THERAPY UNSPECIFIED] [Concomitant]
     Route: 065
  2. ZETIA [Suspect]
     Indication: HYPERLIPIDAEMIA
     Route: 048
     Dates: start: 20031104, end: 20040301
  3. ZETIA [Suspect]
     Route: 048
     Dates: start: 20031104, end: 20040301
  4. ZETIA [Suspect]
     Route: 048
     Dates: start: 20031021, end: 20031103
  5. LASIX [Concomitant]
     Route: 065
  6. WYTENSIN [Concomitant]
     Route: 065
  7. POTASSIUM (UNSPECIFIED) [Concomitant]
     Route: 065

REACTIONS (9)
  - ADVERSE EVENT [None]
  - ARTHROPATHY [None]
  - BURNING SENSATION [None]
  - DYSURIA [None]
  - FALL [None]
  - KNEE OPERATION [None]
  - OEDEMA PERIPHERAL [None]
  - THROMBOSIS [None]
  - URINARY BLADDER HAEMORRHAGE [None]
